FAERS Safety Report 16456550 (Version 3)
Quarter: 2019Q3

REPORT INFORMATION
  Report Type: Report from Study
  Country: JP (occurrence: JP)
  Receive Date: 20190620
  Receipt Date: 20190717
  Transmission Date: 20191004
  Serious: Yes (Death, Hospitalization, Other)
  Sender: FDA-Public Use
  Company Number: JP-BRISTOL-MYERS SQUIBB COMPANY-BMS-2019-058142

PATIENT
  Age: 75 Year
  Sex: Male
  Weight: 58 kg

DRUGS (2)
  1. NIVOLUMAB [Suspect]
     Active Substance: NIVOLUMAB
     Indication: MALIGNANT MELANOMA
     Dosage: 1 DOSAGE FORM
     Route: 041
     Dates: start: 20190313, end: 20190403
  2. IPILIMUMAB [Suspect]
     Active Substance: IPILIMUMAB
     Indication: MALIGNANT MELANOMA
     Dosage: 3 MILLIGRAM/KILOGRAM
     Route: 041
     Dates: start: 20190313, end: 20190403

REACTIONS (5)
  - Cardiac failure [Fatal]
  - Septic shock [Unknown]
  - Adrenal insufficiency [Not Recovered/Not Resolved]
  - Renal impairment [Not Recovered/Not Resolved]
  - Liver disorder [Not Recovered/Not Resolved]
